FAERS Safety Report 12106572 (Version 1)
Quarter: 2016Q1

REPORT INFORMATION
  Report Type: Spontaneous
  Country: PL (occurrence: PL)
  Receive Date: 20160223
  Receipt Date: 20160223
  Transmission Date: 20160526
  Serious: Yes (Other)
  Sender: FDA-Public Use
  Company Number: PL-BAUSCH-BL-2016-004135

PATIENT
  Age: 79 Year
  Sex: Male

DRUGS (1)
  1. DEXAVEN [Suspect]
     Active Substance: DEXAMETHASONE
     Indication: DRUG HYPERSENSITIVITY
     Route: 065

REACTIONS (3)
  - Blood glucose increased [Unknown]
  - Rectal haemorrhage [Unknown]
  - Swelling [Unknown]
